FAERS Safety Report 17549187 (Version 1)
Quarter: 2020Q1

REPORT INFORMATION
  Report Type: Other
  Country: GB (occurrence: GB)
  Receive Date: 20200317
  Receipt Date: 20200317
  Transmission Date: 20200409
  Serious: Yes (Other)
  Sender: FDA-Public Use
  Company Number: GB-LUPIN PHARMACEUTICALS INC.-2019-04894

PATIENT
  Age: 24 Year
  Sex: Female
  Weight: 60 kg

DRUGS (2)
  1. RIGEVIDON [ETHINYLESTRADIOL;LEVONORGESTREL] [Concomitant]
     Active Substance: ETHINYL ESTRADIOL\LEVONORGESTREL
     Indication: PRODUCT USED FOR UNKNOWN INDICATION
     Dosage: UNK
     Route: 065
  2. SERTRALINE HYDROCHLORIDE. [Suspect]
     Active Substance: SERTRALINE HYDROCHLORIDE
     Indication: DEPRESSION
     Dosage: 100 MILLIGRAM
     Route: 048
     Dates: start: 20181212

REACTIONS (1)
  - Bruxism [Not Recovered/Not Resolved]

NARRATIVE: CASE EVENT DATE: 20190415
